FAERS Safety Report 22318059 (Version 2)
Quarter: 2023Q2

REPORT INFORMATION
  Report Type: Report from Study
  Country: PT (occurrence: PT)
  Receive Date: 20230515
  Receipt Date: 20230620
  Transmission Date: 20230721
  Serious: Yes (Hospitalization, Other)
  Sender: FDA-Public Use
  Company Number: PT-ABBVIE-4764125

PATIENT
  Age: 61 Year
  Sex: Male

DRUGS (7)
  1. CARBIDOPA\LEVODOPA [Suspect]
     Active Substance: CARBIDOPA\LEVODOPA
     Indication: Parkinson^s disease
     Dosage: 20 MG + 5 MG?FREQUENCY TEXT: MORN:14.1CC;MAINT:3.6CC/H;EXTR:1.5CC
     Route: 050
     Dates: start: 2021
  2. CARBIDOPA\LEVODOPA [Suspect]
     Active Substance: CARBIDOPA\LEVODOPA
     Dosage: 20 MG + 5 MG?FREQUENCY TEXT: MORN:12CC;MAINT:3.3CC/H;EXTR:1.5CC?STOP DATE TEXT: 2021
     Route: 050
     Dates: start: 20210826
  3. Leponex  (clozapine) [Concomitant]
     Indication: Product used for unknown indication
     Dosage: 7AM, LUNCH, DINNER AND BEDTIME?START DATE TEXT: BEFORE DUODOPA
     Route: 048
  4. Elontril (Bupropion) [Concomitant]
     Indication: Product used for unknown indication
     Dosage: FREQUENCY TEXT: 7AM?START DATE TEXT: BEFORE DUODOPA
     Route: 048
  5. BENSERAZIDE HYDROCHLORIDE\LEVODOPA [Concomitant]
     Active Substance: BENSERAZIDE HYDROCHLORIDE\LEVODOPA
     Indication: Product used for unknown indication
     Dosage: 2 TABLETS AT BEDTIME?START DATE TEXT: BEFORE DUODOPA
     Route: 048
  6. CLONAZEPAM-R [Concomitant]
     Indication: Product used for unknown indication
     Dosage: FORM STRENGTH: 1MG?START DATE TEXT: BEFORE DUODOPA
     Route: 065
  7. Parkadina (amantadine hydrochloride) [Concomitant]
     Indication: Product used for unknown indication
     Dosage: FREQUENCY TEXT: 7 AM AND LUNCH?START DATE TEXT: BEFORE DUODOPA
     Route: 048

REACTIONS (3)
  - Hypoxia [Recovered/Resolved]
  - Increased bronchial secretion [Recovered/Resolved]
  - Pneumonia [Recovered/Resolved]

NARRATIVE: CASE EVENT DATE: 20230501
